FAERS Safety Report 14689184 (Version 1)
Quarter: 2018Q1

REPORT INFORMATION
  Report Type: Spontaneous
  Country: US (occurrence: US)
  Receive Date: 20180327
  Receipt Date: 20180327
  Transmission Date: 20180509
  Serious: No
  Sender: FDA-Public Use
  Company Number: None

PATIENT
  Age: 59 Year
  Sex: Female
  Weight: 65.25 kg

DRUGS (1)
  1. ESTRADIOL VAGINAL [Suspect]
     Active Substance: ESTRADIOL
     Indication: VULVOVAGINAL DRYNESS
     Dosage: ?          QUANTITY:1 GM;?
     Route: 067
     Dates: start: 20180225, end: 20180228

REACTIONS (3)
  - Pelvic pain [None]
  - Vulvovaginal pain [None]
  - Uterine pain [None]

NARRATIVE: CASE EVENT DATE: 20180228
